FAERS Safety Report 6874741-0 (Version None)
Quarter: 2010Q3

REPORT INFORMATION
  Report Type: 
  Country: None (occurrence: None)
  Receive Date: 20100723
  Receipt Date: 20100629
  Transmission Date: 20110219
  Serious: Yes (Other)
  Sender: FDA-Public Use
  Company Number: US-1182454

PATIENT
  Sex: Female
  Weight: 77.1115 kg

DRUGS (20)
  1. NEVANAC [Suspect]
     Indication: CATARACT OPERATION
     Dosage: 3 GTT OS OPHTHALMIC, 1 GTT TID OS OPHTHALMIC , BID OPHTHALMIC
     Route: 047
     Dates: start: 20100605
  2. NEVANAC [Suspect]
  3. OMNIPRED [Suspect]
     Indication: CATARACT OPERATION
     Dosage: 3 GTT TID OS OPHTHALMIC, BID OPHTHALMIC, 1 GTT TID OS OPHTHALMIC
     Route: 047
     Dates: start: 20100622
  4. VIGAMOX [Suspect]
     Indication: CATARACT OPERATION
     Dosage: 3 GTT OS OPHTHALMIC, 1 GTT TID OU OPHTHALMIC
     Route: 047
  5. PROAIR HFA [Concomitant]
  6. SYNTHROID [Concomitant]
  7. HYDROCHOLORTHIAZIDE [Concomitant]
  8. ASPIRIN [Concomitant]
  9. VALIUM [Concomitant]
  10. VITAMIN B COMPLEX CAP [Concomitant]
  11. MULTI-VITAMIN [Concomitant]
  12. GLUCOSAMINE [Concomitant]
  13. CHONDROITIN [Concomitant]
  14. METHYLSULFONYLMETHANE [Concomitant]
  15. MINERAL TAB [Concomitant]
  16. ESTER C [Concomitant]
  17. OTHER NUTRIENTS [Concomitant]
  18. FISH OIL [Concomitant]
  19. MULTI-VITAMIN [Concomitant]
  20. VITAMIN D [Concomitant]

REACTIONS (5)
  - CONDITION AGGRAVATED [None]
  - HYPOAESTHESIA ORAL [None]
  - VISION BLURRED [None]
  - VISUAL ACUITY REDUCED [None]
  - WHEEZING [None]
